FAERS Safety Report 4747500-2 (Version None)
Quarter: 2005Q3

REPORT INFORMATION
  Report Type: 
  Country: None (occurrence: None)
  Receive Date: 20050815
  Receipt Date: 20050606
  Transmission Date: 20060218
  Serious: No
  Sender: FDA-Public Use
  Company Number: USA050699757

PATIENT
  Sex: Male

DRUGS (4)
  1. CIALIS [Suspect]
     Dosage: 20 MG
  2. KALETRA [Concomitant]
  3. ASCORBIC ACID [Concomitant]
  4. VITAMIN E (HERBAL OIL NOS) [Concomitant]

REACTIONS (2)
  - DYSPEPSIA [None]
  - VISION BLURRED [None]
